FAERS Safety Report 13801254 (Version 6)
Quarter: 2017Q4

REPORT INFORMATION
  Report Type: Report from Study
  Country: BE (occurrence: BE)
  Receive Date: 20170727
  Receipt Date: 20171019
  Transmission Date: 20180320
  Serious: Yes (Hospitalization)
  Sender: FDA-Public Use
  Company Number: BE-PFIZER INC-2017325144

PATIENT
  Age: 67 Year
  Sex: Male
  Weight: 93 kg

DRUGS (7)
  1. AVELUMAB [Suspect]
     Active Substance: AVELUMAB
     Dosage: 930 MG, ONCE EVERY TWO WEEKS
     Route: 042
  2. AVELUMAB [Suspect]
     Active Substance: AVELUMAB
     Dosage: 930 MG, ONCE EVERY TWO WEEKS
     Route: 042
  3. AVELUMAB [Suspect]
     Active Substance: AVELUMAB
     Dosage: 930 MG, ONCE EVERY TWO WEEKS
     Route: 042
     Dates: end: 20170427
  4. AVELUMAB [Suspect]
     Active Substance: AVELUMAB
     Dosage: 930 MG, ONCE EVERY TWO WEEKS
     Route: 042
  5. DOCETAXEL. [Suspect]
     Active Substance: DOCETAXEL
     Indication: OESOPHAGEAL ADENOCARCINOMA
     Dosage: 70 MG, UNK
     Dates: start: 20170511
  6. IRINOTECAN HCL [Suspect]
     Active Substance: IRINOTECAN HYDROCHLORIDE
     Indication: OESOPHAGEAL ADENOCARCINOMA
     Dosage: 100 MG, UNK
     Route: 042
     Dates: start: 20170511
  7. AVELUMAB [Suspect]
     Active Substance: AVELUMAB
     Indication: OESOPHAGEAL ADENOCARCINOMA
     Dosage: 930 MG, ONCE EVERY TWO WEEKS
     Route: 042
     Dates: start: 20170216

REACTIONS (1)
  - General physical health deterioration [Recovered/Resolved]

NARRATIVE: CASE EVENT DATE: 20170526
